FAERS Safety Report 9156852 (Version 1)
Quarter: 2013Q1

REPORT INFORMATION
  Report Type: Spontaneous
  Country: US (occurrence: None)
  Receive Date: 20130308
  Receipt Date: 20130308
  Transmission Date: 20140127
  Serious: Yes (Disabling)
  Sender: FDA-Public Use
  Company Number: None

PATIENT
  Age: 74 Year
  Sex: Male
  Weight: 102.51 kg

DRUGS (1)
  1. ROPINEROLE [Suspect]
     Indication: RESTLESS LEGS SYNDROME
     Dosage: 2MG BID PO
     Route: 048
     Dates: start: 20110101, end: 20110701

REACTIONS (3)
  - Hallucinations, mixed [None]
  - Joint lock [None]
  - Gambling [None]
